FAERS Safety Report 15289452 (Version 2)
Quarter: 2018Q3

REPORT INFORMATION
  Report Type: Report from Study
  Country: GB (occurrence: GB)
  Receive Date: 20180817
  Receipt Date: 20180903
  Transmission Date: 20181010
  Serious: Yes (Death, Hospitalization, Other)
  Sender: FDA-Public Use
  Company Number: PHHY2018GB074810

PATIENT
  Age: 41 Year
  Sex: Male

DRUGS (3)
  1. COLOMYCIN [Concomitant]
     Indication: CYSTIC FIBROSIS
     Dosage: (2 MILLION UNITS), BID
     Route: 055
     Dates: start: 201806
  2. PULMOZYME [Concomitant]
     Active Substance: DORNASE ALFA
     Indication: CYSTIC FIBROSIS
     Dosage: 2.5 MG, QD
     Route: 055
  3. TOBI [Suspect]
     Active Substance: TOBRAMYCIN
     Indication: CYSTIC FIBROSIS
     Dosage: 300 MG, BID (ALTERNATING MONTHS)
     Route: 055
     Dates: start: 201806

REACTIONS (2)
  - Death [Fatal]
  - General physical health deterioration [Unknown]

NARRATIVE: CASE EVENT DATE: 201808
